FAERS Safety Report 10695778 (Version 1)
Quarter: 2015Q1

REPORT INFORMATION
  Report Type: Spontaneous
  Country: US (occurrence: None)
  Receive Date: 20150106
  Receipt Date: 20150106
  Transmission Date: 20150721
  Serious: Yes (Hospitalization)
  Sender: FDA-Public Use
  Company Number: None

PATIENT
  Age: 67 Year
  Sex: Male
  Weight: 84.8 kg

DRUGS (1)
  1. CARBOPLATIN. [Suspect]
     Active Substance: CARBOPLATIN
     Indication: MESOTHELIOMA
     Route: 042
     Dates: start: 20140905

REACTIONS (8)
  - Hypomagnesaemia [None]
  - Chest pain [None]
  - Electrocardiogram T wave abnormal [None]
  - Electrocardiogram PR prolongation [None]
  - Pancytopenia [None]
  - Musculoskeletal pain [None]
  - Haemoglobin decreased [None]
  - Pleural effusion [None]

NARRATIVE: CASE EVENT DATE: 20140919
